FAERS Safety Report 9500690 (Version 2)
Quarter: 2013Q4

REPORT INFORMATION
  Report Type: Spontaneous
  Country: US (occurrence: US)
  Receive Date: 20130905
  Receipt Date: 20131205
  Transmission Date: 20140711
  Serious: Yes (Other)
  Sender: FDA-Public Use
  Company Number: US-PFIZER INC-2013252296

PATIENT
  Age: 45 Year
  Sex: Female
  Weight: 56.69 kg

DRUGS (1)
  1. VERAPAMIL HCL [Suspect]
     Indication: MIGRAINE
     Dosage: UNK

REACTIONS (4)
  - Arthropathy [Unknown]
  - Postoperative thrombosis [Unknown]
  - Petechiae [Unknown]
  - Off label use [Not Recovered/Not Resolved]
